FAERS Safety Report 9003844 (Version 1)
Quarter: 2013Q1

REPORT INFORMATION
  Report Type: Spontaneous
  Country: US (occurrence: US)
  Receive Date: 20130108
  Receipt Date: 20130108
  Transmission Date: 20140127
  Serious: No
  Sender: FDA-Public Use
  Company Number: US-GLAXOSMITHKLINE-A0992771A

PATIENT
  Sex: Male

DRUGS (2)
  1. LOVAZA [Suspect]
     Indication: RHEUMATOID ARTHRITIS
     Dosage: 2G PER DAY
     Route: 048
     Dates: start: 20120903
  2. UNKNOWN MEDICATION [Concomitant]

REACTIONS (4)
  - Dyspnoea [Unknown]
  - Pain [Unknown]
  - Increased appetite [Unknown]
  - Weight increased [Unknown]
